FAERS Safety Report 6036575-9 (Version None)
Quarter: 2009Q1

REPORT INFORMATION
  Report Type: 
  Country: None (occurrence: None)
  Receive Date: 20090112
  Receipt Date: 20081202
  Transmission Date: 20090719
  Serious: Yes (Other)
  Sender: FDA-Public Use
  Company Number: 2008AP003424

PATIENT
  Sex: Male

DRUGS (1)
  1. APO-TIMOP (TIMOLOL MALEATE) [Suspect]
     Dosage: ; EYE_DRSOL;
     Route: 047

REACTIONS (1)
  - EYE INFECTION [None]
